FAERS Safety Report 17791125 (Version 1)
Quarter: 2020Q2

REPORT INFORMATION
  Report Type: Spontaneous
  Country: US (occurrence: US)
  Receive Date: 20200514
  Receipt Date: 20200514
  Transmission Date: 20200714
  Serious: No
  Sender: FDA-Public Use
  Company Number: None

PATIENT
  Sex: Female

DRUGS (1)
  1. CAPECITABINE 500MG NOVADOZ PHARMACEUTICALS [Suspect]
     Active Substance: CAPECITABINE
     Indication: BREAST CANCER
     Route: 048
     Dates: start: 201912

REACTIONS (6)
  - Anaemia [None]
  - White blood cell count decreased [None]
  - Red blood cell count decreased [None]
  - Fatigue [None]
  - Pain in extremity [None]
  - Platelet count decreased [None]
